FAERS Safety Report 16457759 (Version 1)
Quarter: 2019Q2

REPORT INFORMATION
  Report Type: Spontaneous
  Country: US (occurrence: US)
  Receive Date: 20190510
  Receipt Date: 20190510
  Transmission Date: 20190711
  Serious: Yes (Hospitalization)
  Sender: FDA-Public Use
  Company Number: None

PATIENT
  Age: 5 Year
  Sex: Female
  Weight: 18.6 kg

DRUGS (10)
  1. CYCLOPHOSPHAMIDE. [Suspect]
     Active Substance: CYCLOPHOSPHAMIDE
     Dates: end: 20160330
  2. CYTARABINE. [Suspect]
     Active Substance: CYTARABINE
     Dates: end: 20160411
  3. DAUNORUBICIN [Suspect]
     Active Substance: DAUNORUBICIN
     Dates: end: 20150905
  4. DOXORUBICIN HYDROCHLORIDE. [Suspect]
     Active Substance: DOXORUBICIN HYDROCHLORIDE
     Dates: end: 20160309
  5. MERCAPTOPURINE. [Suspect]
     Active Substance: MERCAPTOPURINE
     Dates: end: 20171218
  6. ONCASPAR [Suspect]
     Active Substance: PEGASPARGASE
     Dates: end: 20160604
  7. THIOGUANINE (6-TG) [Suspect]
     Active Substance: THIOGUANINE ANHYDROUS
     Dates: end: 20160414
  8. VINCRISTINE [Suspect]
     Active Substance: VINCRISTINE
     Dates: end: 20171208
  9. METHOTREXATE. [Suspect]
     Active Substance: METHOTREXATE
     Dates: end: 20171208
  10. DEXAMETHASONE. [Suspect]
     Active Substance: DEXAMETHASONE
     Dates: end: 20171212

REACTIONS (1)
  - Acute lymphocytic leukaemia recurrent [None]

NARRATIVE: CASE EVENT DATE: 20190322
